FAERS Safety Report 13510581 (Version 1)
Quarter: 2017Q2

REPORT INFORMATION
  Report Type: Spontaneous
  Country: PE (occurrence: PE)
  Receive Date: 20170503
  Receipt Date: 20170503
  Transmission Date: 20170830
  Serious: Yes (Other)
  Sender: FDA-Public Use
  Company Number: PE-PFIZER INC-2017048368

PATIENT
  Age: 41 Year
  Sex: Female

DRUGS (2)
  1. XALATAN [Suspect]
     Active Substance: LATANOPROST
     Indication: GLAUCOMA
     Dosage: 2 GTT (1 DROP ON EACH EYE AT NIGTH) DAILY
     Route: 047
  2. KRYTANTEK [Concomitant]
     Active Substance: BRIMONIDINE TARTRATE\DORZOLAMIDE HYDROCHLORIDE\TIMOLOL MALEATE
     Dosage: 1 GTT IN EACH EYE, UNK

REACTIONS (3)
  - Corneal infection [Recovered/Resolved]
  - Blepharitis [Recovered/Resolved]
  - Pain [Recovered/Resolved]
